FAERS Safety Report 19176215 (Version 1)
Quarter: 2021Q2

REPORT INFORMATION
  Report Type: Report from Study
  Country: CH (occurrence: CH)
  Receive Date: 20210424
  Receipt Date: 20210424
  Transmission Date: 20210717
  Serious: Yes (Death, Life-Threatening, Hospitalization, Other)
  Sender: FDA-Public Use
  Company Number: NVSC2021CH066375

PATIENT
  Age: 64 Year
  Sex: Male
  Weight: 85 kg

DRUGS (1)
  1. INC280 [Suspect]
     Active Substance: CAPMATINIB
     Indication: NON-SMALL CELL LUNG CANCER
     Dosage: 800 MG
     Route: 048
     Dates: start: 20210306, end: 20210316

REACTIONS (6)
  - Death [Fatal]
  - Metabolic acidosis [Recovered/Resolved]
  - Urinary tract infection [Recovered/Resolved]
  - Klebsiella bacteraemia [Recovered/Resolved]
  - Urosepsis [Unknown]
  - Blood bicarbonate decreased [Unknown]

NARRATIVE: CASE EVENT DATE: 20210316
